FAERS Safety Report 23887238 (Version 2)
Quarter: 2024Q2

REPORT INFORMATION
  Report Type: Spontaneous
  Country: IT (occurrence: IT)
  Receive Date: 20240523
  Receipt Date: 20240620
  Transmission Date: 20240716
  Serious: Yes (Other)
  Sender: FDA-Public Use
  Company Number: IT-ABBVIE-5765357

PATIENT
  Sex: Male

DRUGS (1)
  1. EPCORITAMAB [Suspect]
     Active Substance: EPCORITAMAB
     Indication: Diffuse large B-cell lymphoma
     Dosage: FREQUENCY TEXT: NOT REPORTED, START DATE TEXT: NOT REPORTED, THE LAST ADMIN DATE WAS 2024
     Route: 058
     Dates: end: 2024

REACTIONS (3)
  - Hepatic lesion [Unknown]
  - Diffuse large B-cell lymphoma [Unknown]
  - Spinal disorder [Unknown]
